FAERS Safety Report 24628087 (Version 1)
Quarter: 2024Q4

REPORT INFORMATION
  Report Type: Spontaneous
  Country: US (occurrence: US)
  Receive Date: 20241117
  Receipt Date: 20241117
  Transmission Date: 20250115
  Serious: No
  Sender: MERCK
  Company Number: US-009507513-2410USA011864

PATIENT
  Age: 84 Year
  Sex: Male

DRUGS (7)
  1. WELIREG [Suspect]
     Active Substance: BELZUTIFAN
     Indication: Renal cancer
     Dosage: 120MG ONCE DAILY
     Route: 048
     Dates: start: 20241008
  2. DOXAZOSIN [Concomitant]
     Active Substance: DOXAZOSIN\DOXAZOSIN MESYLATE
  3. ELIQUIS [Concomitant]
     Active Substance: APIXABAN
  4. LASIX [Concomitant]
     Active Substance: FUROSEMIDE
  5. POTASSIUM [Concomitant]
     Active Substance: POTASSIUM
  6. CARVEDILOL [Concomitant]
     Active Substance: CARVEDILOL
  7. ATORVASTATIN [Concomitant]
     Active Substance: ATORVASTATIN

REACTIONS (3)
  - Dizziness [Unknown]
  - Fatigue [Unknown]
  - Constipation [Unknown]

NARRATIVE: CASE EVENT DATE: 20241001
